FAERS Safety Report 25525376 (Version 1)
Quarter: 2025Q3

REPORT INFORMATION
  Report Type: Spontaneous
  Country: US (occurrence: None)
  Receive Date: 20250707
  Receipt Date: 20250707
  Transmission Date: 20251021
  Serious: Yes (Other)
  Sender: INCYTE
  Company Number: US-INCYTE CORPORATION-2025IN007163

PATIENT
  Age: 58 Year

DRUGS (1)
  1. JAKAFI [Suspect]
     Active Substance: RUXOLITINIB
     Dosage: 10 MILLIGRAM, BID

REACTIONS (9)
  - Dislocation of vertebra [Unknown]
  - Pain [Unknown]
  - Lung neoplasm [Unknown]
  - Bladder neoplasm [Unknown]
  - Nerve compression [Unknown]
  - Gastrointestinal disorder [Unknown]
  - Decreased appetite [Unknown]
  - Stress [Unknown]
  - Anxiety [Unknown]
